FAERS Safety Report 10301917 (Version 1)
Quarter: 2014Q3

REPORT INFORMATION
  Report Type: Spontaneous
  Country: JP (occurrence: JP)
  Receive Date: 20140714
  Receipt Date: 20140714
  Transmission Date: 20150326
  Serious: Yes (Hospitalization, Other)
  Sender: FDA-Public Use
  Company Number: JP-ASTRAZENECA-2014SE50451

PATIENT

DRUGS (6)
  1. GRAMALIL [Suspect]
     Active Substance: TIAPRIDE HYDROCHLORIDE
     Route: 048
  2. SERENACE [Suspect]
     Active Substance: HALOPERIDOL
     Route: 042
  3. SERENACE [Suspect]
     Active Substance: HALOPERIDOL
     Route: 030
  4. SEROQUEL [Suspect]
     Active Substance: QUETIAPINE FUMARATE
     Route: 048
  5. SERENACE [Suspect]
     Active Substance: HALOPERIDOL
     Route: 042
  6. ATARAX-P [Suspect]
     Active Substance: HYDROXYZINE HYDROCHLORIDE
     Route: 042

REACTIONS (2)
  - Pancreatitis acute [Unknown]
  - Respiratory depression [Unknown]
